FAERS Safety Report 6573459-1 (Version None)
Quarter: 2010Q1

REPORT INFORMATION
  Report Type: 
  Country: None (occurrence: None)
  Receive Date: 20100204
  Receipt Date: 20100204
  Transmission Date: 20100710
  Serious: No
  Sender: FDA-Public Use
  Company Number: None

PATIENT
  Age: 65 Year
  Sex: Female
  Weight: 72.5755 kg

DRUGS (2)
  1. OXYMETAZOLINE HCL [Suspect]
     Indication: NASAL CONGESTION
     Dosage: 1 NOSTRIL SPRAY ONCE NASAL
     Route: 045
     Dates: start: 20100106, end: 20100106
  2. OXYMETAZOLINE HCL [Suspect]
     Indication: NASOPHARYNGITIS
     Dosage: 1 NOSTRIL SPRAY ONCE NASAL
     Route: 045
     Dates: start: 20100106, end: 20100106

REACTIONS (2)
  - NASAL DISCOMFORT [None]
  - PRODUCT ODOUR ABNORMAL [None]
